FAERS Safety Report 5703767-5 (Version None)
Quarter: 2008Q2

REPORT INFORMATION
  Report Type: 
  Country: None (occurrence: None)
  Receive Date: 20080413
  Receipt Date: 20080403
  Transmission Date: 20081010
  Serious: Yes (Hospitalization, Other)
  Sender: FDA-Public Use
  Company Number: PHHY2008IT04509

PATIENT
  Age: 87 Year
  Sex: Male

DRUGS (2)
  1. ZOMETA [Suspect]
     Indication: METASTASES TO BONE
     Dosage: 4 MG, QMO
     Route: 042
     Dates: start: 20051201, end: 20070501
  2. LEUPROLIDE ACETATE [Concomitant]

REACTIONS (2)
  - DENTAL OPERATION [None]
  - OSTEOMYELITIS [None]
